FAERS Safety Report 9663426 (Version 1)
Quarter: 2013Q4

REPORT INFORMATION
  Report Type: Report from Study
  Country: CR (occurrence: CR)
  Receive Date: 20131101
  Receipt Date: 20131101
  Transmission Date: 20140711
  Serious: Yes (Other)
  Sender: FDA-Public Use
  Company Number: CR-JNJFOC-20131010470

PATIENT
  Age: 19 Year
  Sex: Female

DRUGS (3)
  1. SIMETHICONE [Suspect]
     Indication: FLATULENCE
     Route: 065
     Dates: start: 19940203
  2. SIMETHICONE [Suspect]
     Indication: DIARRHOEA
     Route: 065
     Dates: start: 19940203
  3. ETHINYL ESTRADIOL/ NORGESTREL [Concomitant]
     Indication: CONTRACEPTION
     Route: 065

REACTIONS (1)
  - Unintended pregnancy [Recovered/Resolved]
